FAERS Safety Report 23488856 (Version 1)
Quarter: 2024Q1

REPORT INFORMATION
  Report Type: Spontaneous
  Country: US (occurrence: US)
  Receive Date: 20240206
  Receipt Date: 20240206
  Transmission Date: 20240410
  Serious: No
  Sender: FDA-Public Use
  Company Number: US-INSUD PHARMA-2401US00498

PATIENT

DRUGS (2)
  1. PROGESTERONE [Suspect]
     Active Substance: PROGESTERONE
     Indication: Product used for unknown indication
     Dosage: UNK
     Route: 048
     Dates: start: 202312, end: 202401
  2. ESTROGENS [Concomitant]
     Active Substance: ESTROGENS

REACTIONS (8)
  - Breast enlargement [Recovered/Resolved]
  - Breast pain [Recovered/Resolved]
  - Alopecia [Recovered/Resolved]
  - Hormone level abnormal [Recovered/Resolved]
  - Drug ineffective [Recovered/Resolved]
  - Product substitution issue [Unknown]
  - Poor quality product administered [Unknown]
  - Product odour abnormal [Unknown]
